FAERS Safety Report 7637146-0 (Version None)
Quarter: 2011Q3

REPORT INFORMATION
  Report Type: 
  Country: None (occurrence: None)
  Receive Date: 20110726
  Receipt Date: 20110725
  Transmission Date: 20111222
  Serious: Yes (Death, Life-Threatening, Hospitalization, Disabling, Other)
  Sender: FDA-Public Use
  Company Number: US-BAYER-2011-064332

PATIENT
  Age: 52 Year
  Sex: Female

DRUGS (7)
  1. BENECOR [Concomitant]
  2. PHENERGAN [Concomitant]
  3. ZANTAC [Concomitant]
  4. OMEPRAZOLE [Concomitant]
  5. METFORMIN HCL [Concomitant]
  6. AVELOX [Suspect]
     Indication: CHRONIC SINUSITIS
     Dosage: 400 MG, QD
     Route: 048
     Dates: start: 20110528, end: 20110528
  7. SYNTHROID [Concomitant]

REACTIONS (2)
  - MULTI-ORGAN FAILURE [None]
  - ANAPHYLACTIC REACTION [None]
